FAERS Safety Report 12555426 (Version 1)
Quarter: 2016Q3

REPORT INFORMATION
  Report Type: Spontaneous
  Country: US (occurrence: US)
  Receive Date: 20160714
  Receipt Date: 20160714
  Transmission Date: 20161109
  Serious: No
  Sender: FDA-Public Use
  Company Number: US-009507513-1607USA005250

PATIENT

DRUGS (1)
  1. NUVARING [Suspect]
     Active Substance: ETHINYL ESTRADIOL\ETONOGESTREL
     Dosage: THE RING MUST REMAIN IN PLACE CONTINUOUSLY FOR THREE WEEKS FOLLOWED BY A ONE-WEEK RING-FREE INTERVAL
     Route: 067

REACTIONS (2)
  - No adverse event [Unknown]
  - Device breakage [Unknown]
